FAERS Safety Report 24989424 (Version 1)
Quarter: 2025Q1

REPORT INFORMATION
  Report Type: Spontaneous
  Country: CN (occurrence: CN)
  Receive Date: 20250220
  Receipt Date: 20250220
  Transmission Date: 20250408
  Serious: Yes (Other)
  Sender: ALEXION PHARMACEUTICALS
  Company Number: CN-ASTRAZENECA-202502CHN013478CN

PATIENT
  Age: 78 Year
  Weight: 52 kg

DRUGS (1)
  1. SYMBICORT [Suspect]
     Active Substance: BUDESONIDE\FORMOTEROL FUMARATE DIHYDRATE
     Indication: Bronchial disorder
     Dosage: 2.5 MICROGRAM, BID

REACTIONS (3)
  - Respiratory rate increased [Recovering/Resolving]
  - Oxygen saturation decreased [Recovering/Resolving]
  - Throat tightness [Recovering/Resolving]
